FAERS Safety Report 14325465 (Version 1)
Quarter: 2017Q4

REPORT INFORMATION
  Report Type: Spontaneous
  Country: US (occurrence: US)
  Receive Date: 20171225
  Receipt Date: 20171225
  Transmission Date: 20180321
  Serious: Yes (Other)
  Sender: FDA-Public Use
  Company Number: None

PATIENT
  Age: 34 Year
  Sex: Male
  Weight: 72 kg

DRUGS (1)
  1. LISINOPRIL. [Suspect]
     Active Substance: LISINOPRIL
     Indication: HYPERTENSION
     Dates: start: 20140407, end: 20141110

REACTIONS (4)
  - Paraesthesia [None]
  - Dizziness [None]
  - Migraine [None]
  - Hypertension [None]

NARRATIVE: CASE EVENT DATE: 20141110
